FAERS Safety Report 4482347-6 (Version None)
Quarter: 2004Q4

REPORT INFORMATION
  Report Type: 
  Country: None (occurrence: None)
  Receive Date: 20041022
  Receipt Date: 20041011
  Transmission Date: 20050328
  Serious: Yes (Life-Threatening, Hospitalization, Other)
  Sender: FDA-Public Use
  Company Number: US-MERCK-0410USA01544

PATIENT
  Age: 34 Year
  Sex: Female

DRUGS (1)
  1. VIOXX [Suspect]
     Indication: HYPOAESTHESIA
     Route: 048
     Dates: start: 20040301, end: 20040930

REACTIONS (2)
  - CEREBROVASCULAR ACCIDENT [None]
  - LUNG NEOPLASM MALIGNANT [None]
